FAERS Safety Report 5535143-2 (Version None)
Quarter: 2007Q4

REPORT INFORMATION
  Report Type: 
  Country: None (occurrence: None)
  Receive Date: 20071204
  Receipt Date: 20071126
  Transmission Date: 20080405
  Serious: Yes (Other)
  Sender: FDA-Public Use
  Company Number: 2007RL000533

PATIENT
  Sex: Male

DRUGS (2)
  1. RYTHMOL SR [Suspect]
     Indication: DRUG USE FOR UNKNOWN INDICATION
     Dosage: 325 MG; BID
  2. ZITHROMAX [Suspect]
     Indication: BRONCHITIS
     Dates: start: 20071123

REACTIONS (3)
  - BRONCHITIS [None]
  - DIZZINESS [None]
  - SINUS ARREST [None]
